FAERS Safety Report 23362855 (Version 3)
Quarter: 2024Q1

REPORT INFORMATION
  Report Type: Report from Study
  Country: US (occurrence: US)
  Receive Date: 20240103
  Receipt Date: 20240124
  Transmission Date: 20240410
  Serious: Yes (Death, Hospitalization, Other)
  Sender: FDA-Public Use
  Company Number: US-PPDUS-2023ST005435

PATIENT
  Age: 84 Year
  Sex: Female

DRUGS (2)
  1. ORSERDU [Suspect]
     Active Substance: ELACESTRANT
     Indication: Product used for unknown indication
     Route: 048
     Dates: start: 20231129, end: 20231220
  2. ORSERDU [Suspect]
     Active Substance: ELACESTRANT
     Route: 048
     Dates: start: 20240104, end: 20240108

REACTIONS (8)
  - Failure to thrive [Fatal]
  - Hospitalisation [Unknown]
  - Nausea [Recovering/Resolving]
  - Vomiting [Recovering/Resolving]
  - Muscular weakness [Recovering/Resolving]
  - Product use issue [Not Recovered/Not Resolved]
  - Product dose omission issue [Not Recovered/Not Resolved]
  - Hospice care [Unknown]

NARRATIVE: CASE EVENT DATE: 20231222
